FAERS Safety Report 5512555-4 (Version None)
Quarter: 2007Q4

REPORT INFORMATION
  Report Type: 
  Country: None (occurrence: None)
  Receive Date: 20071112
  Receipt Date: 20070925
  Transmission Date: 20080405
  Serious: No
  Sender: FDA-Public Use
  Company Number: A0683944A

PATIENT
  Age: 36 Year
  Sex: Male

DRUGS (3)
  1. AVANDAMET [Suspect]
     Dosage: 1TAB TWICE PER DAY
     Route: 048
  2. PRANDIN [Concomitant]
  3. AVAPRO [Concomitant]

REACTIONS (2)
  - CHEST PAIN [None]
  - MALAISE [None]
